FAERS Safety Report 7342485-7 (Version None)
Quarter: 2011Q1

REPORT INFORMATION
  Report Type: 
  Country: None (occurrence: None)
  Receive Date: 20110310
  Receipt Date: 20110307
  Transmission Date: 20110831
  Serious: No
  Sender: FDA-Public Use
  Company Number: US-PFIZER INC-2011049982

PATIENT
  Sex: Female
  Weight: 65.8 kg

DRUGS (2)
  1. RELPAX [Suspect]
     Indication: MIGRAINE
     Dosage: 40 MG, AS NEEDED
     Route: 048
     Dates: start: 20060101
  2. TOPAMAX [Concomitant]
     Dosage: UNK

REACTIONS (3)
  - FATIGUE [None]
  - FEELING ABNORMAL [None]
  - NECK PAIN [None]
